FAERS Safety Report 8305720-4 (Version None)
Quarter: 2012Q2

REPORT INFORMATION
  Report Type: 
  Country: None (occurrence: None)
  Receive Date: 20120423
  Receipt Date: 20120416
  Transmission Date: 20120825
  Serious: Yes (Hospitalization)
  Sender: FDA-Public Use
  Company Number: US-US-EMD SERONO, INC.-7091768

PATIENT
  Sex: Male

DRUGS (1)
  1. REBIF [Suspect]
     Indication: PRODUCT USED FOR UNKNOWN INDICATION
     Route: 058
     Dates: start: 20050909

REACTIONS (6)
  - BALANCE DISORDER [None]
  - INJECTION SITE INFECTION [None]
  - FALL [None]
  - INJECTION SITE SCAR [None]
  - RIB FRACTURE [None]
  - INJECTION SITE IRRITATION [None]
